FAERS Safety Report 5802958-2 (Version None)
Quarter: 2008Q3

REPORT INFORMATION
  Report Type: 
  Country: None (occurrence: None)
  Receive Date: 20080708
  Receipt Date: 20080627
  Transmission Date: 20090109
  Serious: Yes (Death)
  Sender: FDA-Public Use
  Company Number: FR-ROCHE-573140

PATIENT
  Age: 56 Year
  Sex: Male

DRUGS (6)
  1. RIVOTRIL [Suspect]
     Indication: EPILEPSY
     Route: 048
  2. LEPTICUR [Suspect]
     Indication: DRUG USE FOR UNKNOWN INDICATION
     Dosage: DRUG NAME: LEPTICUR 10
     Route: 048
  3. GARDENAL [Suspect]
     Indication: EPILEPSY
     Dosage: FORM: INJECTABLE SOLUTION.
     Route: 048
  4. EQUANIL [Suspect]
     Indication: DRUG USE FOR UNKNOWN INDICATION
     Dosage: DRUG: EQUANIL 400
     Route: 048
  5. TIAPRIDE [Suspect]
     Route: 048
  6. RISPERDAL [Suspect]
     Indication: DRUG USE FOR UNKNOWN INDICATION
     Route: 048

REACTIONS (1)
  - SUDDEN DEATH [None]
